FAERS Safety Report 8178111-7 (Version None)
Quarter: 2012Q1

REPORT INFORMATION
  Report Type: 
  Country: None (occurrence: None)
  Receive Date: 20120301
  Receipt Date: 20120215
  Transmission Date: 20120608
  Serious: Yes (Other)
  Sender: FDA-Public Use
  Company Number: CHPA2012US003220

PATIENT
  Sex: Female

DRUGS (1)
  1. EXCEDRIN (MIGRAINE) [Suspect]
     Indication: MIGRAINE
     Dosage: 1-2 DF, PRN
     Route: 048
     Dates: start: 20110201, end: 20120201

REACTIONS (9)
  - WEIGHT DECREASED [None]
  - ABDOMINAL DISTENSION [None]
  - UNDERDOSE [None]
  - FATIGUE [None]
  - SLEEP DISORDER [None]
  - DYSPEPSIA [None]
  - GASTRITIS EROSIVE [None]
  - MALAISE [None]
  - ABDOMINAL PAIN UPPER [None]
